FAERS Safety Report 8238661-1 (Version None)
Quarter: 2012Q1

REPORT INFORMATION
  Report Type: 
  Country: None (occurrence: None)
  Receive Date: 20120323
  Receipt Date: 20120319
  Transmission Date: 20120608
  Serious: Yes (Hospitalization)
  Sender: FDA-Public Use
  Company Number: 2012SP005622

PATIENT
  Sex: Female

DRUGS (2)
  1. LERCANIDIPINE [Suspect]
     Indication: PRODUCT USED FOR UNKNOWN INDICATION
  2. PEGATRON (PEGYLATED INTERFERON ALFA-2B W/RIBAVIRIN) [Suspect]
     Indication: HEPATITIS C

REACTIONS (9)
  - MOUTH ULCERATION [None]
  - GINGIVAL BLEEDING [None]
  - TRANSFUSION REACTION [None]
  - FATIGUE [None]
  - BLOOD PRESSURE DECREASED [None]
  - FALL [None]
  - HAEMORRHAGE [None]
  - FULL BLOOD COUNT DECREASED [None]
  - ALOPECIA [None]
